FAERS Safety Report 7012083-3 (Version None)
Quarter: 2010Q3

REPORT INFORMATION
  Report Type: 
  Country: None (occurrence: None)
  Receive Date: 20100924
  Receipt Date: 20100914
  Transmission Date: 20110219
  Serious: Yes (Other)
  Sender: FDA-Public Use
  Company Number: GB-JNJFOC-20100906035

PATIENT
  Age: 17 Year
  Sex: Female

DRUGS (1)
  1. HALOPERIDOL [Suspect]
     Indication: MANIA
     Dosage: UPTO 20 MG
     Route: 030

REACTIONS (2)
  - DEHYDRATION [None]
  - SEDATION [None]
